FAERS Safety Report 16623352 (Version 2)
Quarter: 2019Q4

REPORT INFORMATION
  Report Type: Report from Study
  Country: CA (occurrence: CA)
  Receive Date: 20190723
  Receipt Date: 20191024
  Transmission Date: 20200122
  Serious: Yes (Other)
  Sender: FDA-Public Use
  Company Number: CA-TEVA-2019-CA-1080245

PATIENT
  Age: 68 Year
  Sex: Female

DRUGS (8)
  1. MORPHINE SULFATE. [Suspect]
     Active Substance: MORPHINE SULFATE
     Indication: PRODUCT USED FOR UNKNOWN INDICATION
     Route: 065
  2. SANDOSTATIN [Suspect]
     Active Substance: OCTREOTIDE ACETATE
     Indication: ACROMEGALY
     Route: 030
  3. ROSUVASTATIN CALCIUM. [Concomitant]
     Active Substance: ROSUVASTATIN CALCIUM
     Route: 065
  4. PMS-CARVEDILOL [Concomitant]
     Route: 065
  5. TERAZOSIN [Concomitant]
     Active Substance: TERAZOSIN HYDROCHLORIDE
     Route: 065
  6. CODEINE [Suspect]
     Active Substance: CODEINE
     Indication: PRODUCT USED FOR UNKNOWN INDICATION
     Route: 065
  7. HYDROCORTISONE ACETATE. [Concomitant]
     Active Substance: HYDROCORTISONE ACETATE
     Route: 065
  8. OLMETEC [Concomitant]
     Active Substance: OLMESARTAN MEDOXOMIL
     Route: 065

REACTIONS (13)
  - Bradycardia [Unknown]
  - Body temperature decreased [Unknown]
  - Cystitis [Unknown]
  - Drug hypersensitivity [Unknown]
  - Movement disorder [Unknown]
  - Influenza [Unknown]
  - Malaise [Unknown]
  - Back disorder [Unknown]
  - Blood pressure systolic increased [Unknown]
  - Hypertonic bladder [Unknown]
  - Needle issue [Unknown]
  - Blood pressure increased [Unknown]
  - Kidney infection [Unknown]
